FAERS Safety Report 16657407 (Version 2)
Quarter: 2019Q3

REPORT INFORMATION
  Report Type: Spontaneous
  Country: US (occurrence: US)
  Receive Date: 20190801
  Receipt Date: 20190806
  Transmission Date: 20191004
  Serious: Yes (Hospitalization, Other)
  Sender: FDA-Public Use
  Company Number: US-ABBVIE-19K-163-2873570-00

PATIENT
  Age: 67 Year
  Sex: Female

DRUGS (1)
  1. HUMIRA [Suspect]
     Active Substance: ADALIMUMAB
     Indication: CROHN^S DISEASE
     Route: 058
     Dates: start: 2019

REACTIONS (8)
  - Sepsis [Unknown]
  - Hepatic lesion [Unknown]
  - Pulmonary mass [Unknown]
  - Hypotension [Unknown]
  - Disseminated tuberculosis [Unknown]
  - Spleen disorder [Unknown]
  - Central nervous system lesion [Unknown]
  - Granuloma [Unknown]

NARRATIVE: CASE EVENT DATE: 201907
